FAERS Safety Report 22095898 (Version 1)
Quarter: 2023Q1

REPORT INFORMATION
  Report Type: Report from Study
  Country: US (occurrence: US)
  Receive Date: 20230315
  Receipt Date: 20230315
  Transmission Date: 20230417
  Serious: Yes (Hospitalization, Other)
  Sender: FDA-Public Use
  Company Number: US-JNJFOC-20230321353

PATIENT
  Sex: Female

DRUGS (1)
  1. RIVAROXABAN [Suspect]
     Active Substance: RIVAROXABAN
     Indication: Product used for unknown indication
     Route: 048

REACTIONS (6)
  - Heart rate increased [Unknown]
  - High frequency ablation [Unknown]
  - Atrial fibrillation [Unknown]
  - COVID-19 [Unknown]
  - Epistaxis [Unknown]
  - Rash [Unknown]

NARRATIVE: CASE EVENT DATE: 20221201
